FAERS Safety Report 7371087-1 (Version None)
Quarter: 2011Q1

REPORT INFORMATION
  Report Type: 
  Country: None (occurrence: None)
  Receive Date: 20110324
  Receipt Date: 20110224
  Transmission Date: 20110831
  Serious: Yes (Other)
  Sender: FDA-Public Use
  Company Number: US-BAYER-200915931NA

PATIENT
  Sex: Male

DRUGS (10)
  1. NITROGLYCERIN [Concomitant]
  2. TRASYLOL [Suspect]
     Indication: CORONARY ARTERY BYPASS
     Dates: start: 20060731
  3. METOPROLOL [Concomitant]
     Dosage: UNK UNK, QD
     Route: 048
  4. LORCET-HD [Concomitant]
     Dosage: 1-3 DAILY AS NEEDED FOR PAIN
     Route: 048
  5. HEPARIN [Concomitant]
  6. IMDUR [Concomitant]
     Dosage: UNK UNK, QD
     Route: 048
  7. LIPITOR [Concomitant]
     Dosage: 40 MG, QD
     Route: 048
  8. PRILOSEC [Concomitant]
     Dosage: 20 MG, QD
     Route: 048
  9. MUCOMYST [Concomitant]
  10. TOPROL-XL [Concomitant]
     Dosage: 50 MG, QD
     Route: 048

REACTIONS (10)
  - UNEVALUABLE EVENT [None]
  - FEAR [None]
  - INJURY [None]
  - PAIN [None]
  - EMOTIONAL DISTRESS [None]
  - RENAL FAILURE [None]
  - ANHEDONIA [None]
  - MULTI-ORGAN FAILURE [None]
  - ANXIETY [None]
  - STRESS [None]
